FAERS Safety Report 15579443 (Version 3)
Quarter: 2019Q1

REPORT INFORMATION
  Report Type: Spontaneous
  Country: JP (occurrence: JP)
  Receive Date: 20181102
  Receipt Date: 20190107
  Transmission Date: 20190417
  Serious: Yes (Hospitalization, Other)
  Sender: FDA-Public Use
  Company Number: JP-VIFOR (INTERNATIONAL) INC.-VIT-2018-10716

PATIENT
  Age: 73 Year
  Sex: Male

DRUGS (7)
  1. SENNOSIDE [Concomitant]
     Active Substance: SENNOSIDES
     Dosage: DOSAGE IS UNCERTAIN
     Route: 065
     Dates: start: 20170817, end: 20180222
  2. MIRCERA [Suspect]
     Active Substance: METHOXY POLYETHYLENE GLYCOL-EPOETIN BETA
     Indication: NEPHROGENIC ANAEMIA
     Route: 042
     Dates: start: 20170502, end: 201803
  3. AZILVA [Concomitant]
     Active Substance: AZILSARTAN KAMEDOXOMIL
     Dates: start: 20171012, end: 20171207
  4. EPOETIN ALFA [Concomitant]
     Active Substance: ERYTHROPOIETIN
     Indication: NEPHROGENIC ANAEMIA
     Route: 042
     Dates: start: 201705, end: 201802
  5. SODIUM POLYSTYRENE SULFONATE. [Concomitant]
     Active Substance: SODIUM POLYSTYRENE SULFONATE
     Dosage: DOSAGE IS UNCERTAIN
     Route: 065
     Dates: start: 20140605, end: 20180222
  6. RIONA [Concomitant]
     Active Substance: FERRIC CITRATE ANHYDROUS
     Dosage: DOSAGE IS UNCERTAIN
     Route: 065
     Dates: start: 20161124, end: 20180222
  7. AZILVA [Concomitant]
     Active Substance: AZILSARTAN KAMEDOXOMIL
     Dates: start: 20170413, end: 20170608

REACTIONS (6)
  - Respiratory distress [Unknown]
  - Dyspnoea [Unknown]
  - Palpitations [Unknown]
  - Haemoglobin decreased [Not Recovered/Not Resolved]
  - Appendicitis [Unknown]
  - Bone marrow failure [Unknown]

NARRATIVE: CASE EVENT DATE: 20180215
